FAERS Safety Report 4614302-7 (Version None)
Quarter: 2005Q1

REPORT INFORMATION
  Report Type: 
  Country: None (occurrence: None)
  Receive Date: 20050315
  Receipt Date: 20050222
  Transmission Date: 20050727
  Serious: Yes (Hospitalization, Other)
  Sender: FDA-Public Use
  Company Number: USA040977233

PATIENT
  Age: 45 Year
  Sex: Male
  Weight: 136 kg

DRUGS (7)
  1. ZYPREXA [Suspect]
     Dosage: 15 MG
     Dates: start: 20040501, end: 20040501
  2. ZYPREXA [Suspect]
     Indication: SCHIZOPHRENIA
     Dosage: 30 MG DAY
     Dates: start: 20040601
  3. ABILIFY (AIRIPIPRAZOLE) [Concomitant]
  4. DEPAKOTE [Concomitant]
  5. DEPAKENE [Concomitant]
  6. KLONOPIN [Concomitant]
  7. CELEBREX [Concomitant]

REACTIONS (11)
  - ABNORMAL BEHAVIOUR [None]
  - DRUG INEFFECTIVE [None]
  - FATIGUE [None]
  - HANGOVER [None]
  - LOSS OF CONSCIOUSNESS [None]
  - PALPITATIONS [None]
  - PRESCRIBED OVERDOSE [None]
  - RESPIRATORY FAILURE [None]
  - SENSORY LOSS [None]
  - TREATMENT NONCOMPLIANCE [None]
  - TREMOR [None]
